FAERS Safety Report 4428538-1 (Version None)
Quarter: 2004Q3

REPORT INFORMATION
  Report Type: 
  Country: None (occurrence: None)
  Receive Date: 20040818
  Receipt Date: 20040810
  Transmission Date: 20050211
  Serious: Yes (Death)
  Sender: FDA-Public Use
  Company Number: US-JNJFOC-20040803319

PATIENT
  Age: 87 Year
  Sex: Female

DRUGS (1)
  1. DURAGESIC [Suspect]
     Route: 062
     Dates: start: 19990101

REACTIONS (2)
  - FALL [None]
  - HIP FRACTURE [None]
